FAERS Safety Report 11568937 (Version 1)
Quarter: 2015Q3

REPORT INFORMATION
  Report Type: Report from Study
  Country: CA (occurrence: CA)
  Receive Date: 20150929
  Receipt Date: 20150929
  Transmission Date: 20151125
  Serious: Yes (Other)
  Sender: FDA-Public Use
  Company Number: CA-JNJFOC-20150921493

PATIENT
  Age: 59 Year
  Sex: Female
  Weight: 105 kg

DRUGS (1)
  1. REMICADE [Suspect]
     Active Substance: INFLIXIMAB
     Indication: RHEUMATOID ARTHRITIS
     Route: 042

REACTIONS (4)
  - Musculoskeletal discomfort [Unknown]
  - Breast cancer [Unknown]
  - Erythema [Unknown]
  - Skin warm [Unknown]

NARRATIVE: CASE EVENT DATE: 2003
